FAERS Safety Report 21472221 (Version 4)
Quarter: 2022Q4

REPORT INFORMATION
  Report Type: Spontaneous
  Country: US (occurrence: US)
  Receive Date: 20221018
  Receipt Date: 20221130
  Transmission Date: 20230112
  Serious: Yes (Death, Hospitalization, Other)
  Sender: FDA-Public Use
  Company Number: US-009507513-2210USA003149

PATIENT
  Age: 36 Year
  Sex: Female

DRUGS (1)
  1. TEMODAR [Suspect]
     Active Substance: TEMOZOLOMIDE
     Indication: Anaplastic astrocytoma
     Dosage: UNK

REACTIONS (2)
  - Pneumocystis jirovecii pneumonia [Fatal]
  - Acute respiratory distress syndrome [Fatal]
